FAERS Safety Report 16071768 (Version 1)
Quarter: 2019Q1

REPORT INFORMATION
  Report Type: Spontaneous
  Country: US (occurrence: US)
  Receive Date: 20190314
  Receipt Date: 20190314
  Transmission Date: 20190418
  Serious: Yes (Other)
  Sender: FDA-Public Use
  Company Number: US-PFIZER INC-2019100771

PATIENT
  Age: 22 Year
  Sex: Male

DRUGS (1)
  1. VIAGRA [Suspect]
     Active Substance: SILDENAFIL CITRATE
     Dosage: 50 MG, UNK
     Route: 048

REACTIONS (3)
  - Erection increased [Not Recovered/Not Resolved]
  - Painful erection [Not Recovered/Not Resolved]
  - Drug effect prolonged [Not Recovered/Not Resolved]
